FAERS Safety Report 5450002-1 (Version None)
Quarter: 2007Q3

REPORT INFORMATION
  Report Type: 
  Country: None (occurrence: None)
  Receive Date: 20070912
  Receipt Date: 20070904
  Transmission Date: 20080115
  Serious: No
  Sender: FDA-Public Use
  Company Number: US-BAXTER-2007BH007539

PATIENT
  Sex: Female

DRUGS (4)
  1. ATIVAN [Suspect]
     Indication: VOMITING
     Route: 042
     Dates: start: 20060822
  2. NEXIUM [Concomitant]
     Indication: VOMITING
     Dates: start: 20060821
  3. ZOFRAN [Concomitant]
     Indication: VOMITING
     Dates: start: 20060821
  4. PHENERGAN HCL [Concomitant]
     Indication: VOMITING
     Route: 042
     Dates: start: 20060821

REACTIONS (7)
  - AFFECT LABILITY [None]
  - AGITATION [None]
  - AMNESIA [None]
  - ANXIETY [None]
  - DYSKINESIA [None]
  - MENTAL STATUS CHANGES [None]
  - POST-TRAUMATIC STRESS DISORDER [None]
